FAERS Safety Report 23518188 (Version 1)
Quarter: 2024Q1

REPORT INFORMATION
  Report Type: Spontaneous
  Country: HR (occurrence: HR)
  Receive Date: 20240213
  Receipt Date: 20240213
  Transmission Date: 20240410
  Serious: Yes (Hospitalization)
  Sender: FDA-Public Use
  Company Number: None

PATIENT
  Age: 2 Year
  Sex: Female
  Weight: 17 kg

DRUGS (1)
  1. AZITHROMYCIN [Suspect]
     Active Substance: AZITHROMYCIN
     Indication: Pertussis
     Dosage: THE STRENGTH OF THE MEDICINE100MG/5ML 20ML?ADR IS ADEQUATELY LABELLED: YES
     Route: 048
     Dates: start: 20231124, end: 20231126

REACTIONS (4)
  - Yellow skin [Recovering/Resolving]
  - Hyperhidrosis [Recovering/Resolving]
  - Abdominal pain [Recovering/Resolving]
  - Somnolence [Recovering/Resolving]

NARRATIVE: CASE EVENT DATE: 20231127
